FAERS Safety Report 12313610 (Version 2)
Quarter: 2016Q2

REPORT INFORMATION
  Report Type: Spontaneous
  Country: JP (occurrence: JP)
  Receive Date: 20160428
  Receipt Date: 20160601
  Transmission Date: 20160815
  Serious: Yes (Life-Threatening, Other)
  Sender: FDA-Public Use
  Company Number: JP-PFIZER INC-2016235018

PATIENT
  Age: 63 Year
  Sex: Female
  Weight: 97 kg

DRUGS (1)
  1. ZOSYN [Suspect]
     Active Substance: PIPERACILLIN SODIUM\TAZOBACTAM SODIUM
     Indication: CELLULITIS
     Dosage: 4.5 G, DAILY
     Route: 041
     Dates: start: 20160310, end: 20160310

REACTIONS (2)
  - Cardiac arrest [Recovering/Resolving]
  - Product use issue [Unknown]

NARRATIVE: CASE EVENT DATE: 20160310
